FAERS Safety Report 9871242 (Version 8)
Quarter: 2015Q2

REPORT INFORMATION
  Report Type: Spontaneous
  Country: US (occurrence: US)
  Receive Date: 20140205
  Receipt Date: 20150522
  Transmission Date: 20150821
  Serious: Yes (Hospitalization, Other)
  Sender: FDA-Public Use
  Company Number: US-GLAXOSMITHKLINE-A1059084A

PATIENT
  Age: 29 Year
  Sex: Female

DRUGS (6)
  1. FLOLAN [Suspect]
     Active Substance: EPOPROSTENOL SODIUM
     Dosage: 14 NG/KG/MIN
     Route: 042
     Dates: start: 20140114
  2. FLOLAN [Suspect]
     Active Substance: EPOPROSTENOL SODIUM
     Dosage: 15 NG/KG/MIN
     Route: 042
  3. FLOLAN [Suspect]
     Active Substance: EPOPROSTENOL SODIUM
     Dosage: UNK
     Dates: start: 20140114
  4. FLOLAN [Suspect]
     Active Substance: EPOPROSTENOL SODIUM
     Indication: PULMONARY ARTERIAL HYPERTENSION
     Dosage: 5.5 NG/KG/MIN, CONC. 10,000 NG/ML, VIAL STRENGTH 0.5 MG7 NG/KG/MIN, 15,000 NG/ML 0.5 MG VIAL ST[...]
     Route: 042
     Dates: start: 20140114
  5. REVATIO [Concomitant]
     Active Substance: SILDENAFIL CITRATE
  6. LETAIRIS [Concomitant]
     Active Substance: AMBRISENTAN

REACTIONS (9)
  - Chest pain [Unknown]
  - Catheter site rash [Not Recovered/Not Resolved]
  - Rash [Unknown]
  - Pain in extremity [Unknown]
  - Headache [Unknown]
  - Pain in jaw [Unknown]
  - Hospitalisation [Unknown]
  - Vomiting [Unknown]
  - Nausea [Unknown]

NARRATIVE: CASE EVENT DATE: 201401
